FAERS Safety Report 6403623-3 (Version None)
Quarter: 2009Q4

REPORT INFORMATION
  Report Type: 
  Country: None (occurrence: None)
  Receive Date: 20091016
  Receipt Date: 20091006
  Transmission Date: 20100525
  Serious: Yes (Hospitalization, Other)
  Sender: FDA-Public Use
  Company Number: FR-JNJFOC-20090802680

PATIENT
  Age: 46 Year
  Sex: Male

DRUGS (15)
  1. REOPRO [Suspect]
     Indication: THROMBOSIS IN DEVICE
     Route: 042
     Dates: start: 20090802
  2. DOBUTAMINE HCL [Suspect]
     Indication: THROMBOSIS IN DEVICE
  3. ACETAMINOPHEN [Suspect]
  4. ACETAMINOPHEN [Suspect]
     Indication: THROMBOSIS IN DEVICE
  5. KARDEGIC [Concomitant]
  6. PLAVIX [Concomitant]
  7. NEXIUM [Concomitant]
  8. ROSUVASTATIN [Concomitant]
  9. ZOPICLONE [Concomitant]
  10. LOPINAVIR [Concomitant]
     Indication: HIV INFECTION
  11. RITONAVIR [Concomitant]
     Indication: HIV INFECTION
  12. DIDANOSINE [Concomitant]
     Indication: HIV INFECTION
  13. ABACAVIR [Concomitant]
     Indication: HIV INFECTION
  14. HEPARIN [Concomitant]
     Indication: THROMBOSIS IN DEVICE
  15. COTRIM [Concomitant]
     Indication: DRUG USE FOR UNKNOWN INDICATION

REACTIONS (3)
  - PUNCTURE SITE HAEMORRHAGE [None]
  - THROMBOCYTOPENIA [None]
  - VESSEL PUNCTURE SITE HAEMATOMA [None]
